FAERS Safety Report 9138936 (Version 2)
Quarter: 2013Q1

REPORT INFORMATION
  Report Type: Spontaneous
  Country: US (occurrence: US)
  Receive Date: 20130305
  Receipt Date: 20130321
  Transmission Date: 20140127
  Serious: No
  Sender: FDA-Public Use
  Company Number: US-PFIZER INC-2013070788

PATIENT
  Age: 79 Year
  Sex: Female
  Weight: 69.84 kg

DRUGS (5)
  1. TOVIAZ [Suspect]
     Indication: BLADDER DISORDER
     Dosage: 8 MG, 1X/DAY AT NIGHT
  2. CORTISONE [Suspect]
     Indication: MUSCULOSKELETAL STIFFNESS
     Dosage: UNK
  3. NAPROSYN [Suspect]
     Indication: MUSCULOSKELETAL STIFFNESS
     Dosage: UNK
  4. ALLOPURINOL [Concomitant]
     Indication: GOUT
     Dosage: 300 MG, 1X/DAY
     Dates: start: 201111
  5. SERTRALINE [Concomitant]
     Dosage: 50 MG, 1X/DAY

REACTIONS (2)
  - Drug ineffective [Unknown]
  - Musculoskeletal stiffness [Not Recovered/Not Resolved]
